FAERS Safety Report 20239285 (Version 1)
Quarter: 2021Q4

REPORT INFORMATION
  Report Type: Spontaneous
  Country: US (occurrence: US)
  Receive Date: 20211228
  Receipt Date: 20211228
  Transmission Date: 20220304
  Serious: No
  Sender: FDA-Public Use
  Company Number: US-ALVOGEN-2021-ALVOGEN-117206

PATIENT
  Sex: Female

DRUGS (4)
  1. FENTANYL [Suspect]
     Active Substance: FENTANYL
     Indication: Product used for unknown indication
     Dates: start: 20210417
  2. OXYCODONE [Concomitant]
     Active Substance: OXYCODONE
     Indication: Product used for unknown indication
     Dosage: 4 TIMES
  3. LYRICA [Concomitant]
     Active Substance: PREGABALIN
     Indication: Product used for unknown indication
  4. MELAX [Concomitant]
     Indication: Product used for unknown indication

REACTIONS (4)
  - Product adhesion issue [Unknown]
  - Drug ineffective [Unknown]
  - Product quality issue [Unknown]
  - Product substitution issue [Unknown]
